FAERS Safety Report 7917509-6 (Version None)
Quarter: 2011Q4

REPORT INFORMATION
  Report Type: 
  Country: None (occurrence: None)
  Receive Date: 20111116
  Receipt Date: 20110922
  Transmission Date: 20120403
  Serious: Yes (Other)
  Sender: FDA-Public Use
  Company Number: RO-ROCHE-775425

PATIENT
  Sex: Male

DRUGS (9)
  1. COPEGUS [Suspect]
     Dosage: REDUCED DOSAGE
     Route: 065
  2. COPEGUS [Suspect]
     Indication: HEPATITIS C
     Route: 065
     Dates: start: 20100728, end: 20100810
  3. INTERFERON ALFA [Suspect]
     Route: 065
  4. ALUMINUM HYDROXIDE AND MAGNESIUM TRISILICATE [Concomitant]
  5. INTERFERON ALFA [Suspect]
     Indication: HEPATITIS C
     Route: 065
     Dates: start: 20100728, end: 20110330
  6. COPEGUS [Suspect]
     Route: 065
  7. INTERFERON [Suspect]
     Route: 065
  8. COPEGUS [Suspect]
     Dosage: REDUCED DOSAGE
     Route: 065
     Dates: start: 20101007, end: 20110403
  9. INTERFERON [Suspect]
     Indication: HEPATITIS C
     Route: 065
     Dates: start: 20100728, end: 20110330

REACTIONS (2)
  - HYPERBILIRUBINAEMIA [None]
  - HEPATIC ENZYME INCREASED [None]
